FAERS Safety Report 13163119 (Version 1)
Quarter: 2017Q1

REPORT INFORMATION
  Report Type: Spontaneous
  Country: NL (occurrence: NL)
  Receive Date: 20170130
  Receipt Date: 20170130
  Transmission Date: 20170428
  Serious: Yes (Hospitalization)
  Sender: FDA-Public Use
  Company Number: PHHY2017NL011413

PATIENT
  Sex: Female
  Weight: 60 kg

DRUGS (1)
  1. CARBAMAZEPINE. [Suspect]
     Active Substance: CARBAMAZEPINE
     Indication: NEURALGIA
     Dosage: 1 DF, BID (200 MG TABLET)
     Route: 065
     Dates: start: 20161109, end: 20161130

REACTIONS (5)
  - Oropharyngeal pain [Recovered/Resolved with Sequelae]
  - Stevens-Johnson syndrome [Recovered/Resolved with Sequelae]
  - Oral pain [Recovered/Resolved with Sequelae]
  - Pyrexia [Recovered/Resolved with Sequelae]
  - Pruritus generalised [Recovered/Resolved with Sequelae]

NARRATIVE: CASE EVENT DATE: 20161122
